FAERS Safety Report 4282026-4 (Version None)
Quarter: 2004Q1

REPORT INFORMATION
  Report Type: 
  Country: None (occurrence: None)
  Receive Date: 20040128
  Receipt Date: 20040120
  Transmission Date: 20041129
  Serious: Yes (Hospitalization, Other)
  Sender: FDA-Public Use
  Company Number: GBWYE530422JAN04

PATIENT
  Age: 75 Year
  Sex: Male

DRUGS (8)
  1. RAPAMUNE [Suspect]
     Indication: IMMUNOSUPPRESSION
     Dosage: 4 MG ORAL
     Route: 048
     Dates: start: 20031212, end: 20031223
  2. CALCITRIOL [Concomitant]
  3. ADALAT [Concomitant]
  4. LANSOPRAZOLE [Concomitant]
  5. ASPIRIN [Concomitant]
  6. PRAVASTATIN [Concomitant]
  7. PREDNISOLONE [Concomitant]
  8. ALLOPURINOL [Concomitant]

REACTIONS (3)
  - OROPHARYNGEAL SWELLING [None]
  - SEPSIS [None]
  - SWELLING FACE [None]
